FAERS Safety Report 5205663-9 (Version None)
Quarter: 2007Q1

REPORT INFORMATION
  Report Type: 
  Country: None (occurrence: None)
  Receive Date: 20070105
  Receipt Date: 20070105
  Transmission Date: 20070707
  Serious: Yes (Life-Threatening, Other)
  Sender: FDA-Public Use
  Company Number: None

PATIENT
  Sex: Male

DRUGS (27)
  1. HYDROMORPHONE HCL [Suspect]
     Indication: PAIN
     Dosage: 2 MG IV  Q 2HRS
     Route: 042
     Dates: start: 20060624
  2. ACYCLOVIR [Concomitant]
  3. ASPIRIN [Concomitant]
  4. AMITRIPTYLINE HCL [Concomitant]
  5. CEFEPIME [Concomitant]
  6. CLONAZEPAM [Concomitant]
  7. INSULIN [Concomitant]
  8. FENTANYL TRANSDERMAL SYSTEM [Concomitant]
  9. FUROSEMIDE [Concomitant]
  10. GABAPENTIN [Concomitant]
  11. GENTAMICIN SULFATE [Concomitant]
  12. LACTOBACILLUS [Concomitant]
  13. LANSOPRAZOLE [Concomitant]
  14. LEVOTHYROXINE SODIUM [Concomitant]
  15. LINEZOLID [Concomitant]
  16. MESALAMINE [Concomitant]
  17. METOCLOPRAMIDE [Concomitant]
  18. METOPROLOL SUCCINATE [Concomitant]
  19. METRONIDAZOLE [Concomitant]
  20. NYSTATIN [Concomitant]
  21. PREDNISONE [Concomitant]
  22. QUINUPRISTIN/DALFOPRISTIN [Concomitant]
  23. RANITIDINE [Concomitant]
  24. TACROLIMUS [Concomitant]
  25. TEGASAROD [Concomitant]
  26. TEMAZEPAM [Concomitant]
  27. VANCOMYCIN [Concomitant]

REACTIONS (5)
  - LETHARGY [None]
  - OXYGEN SATURATION DECREASED [None]
  - PAIN IN EXTREMITY [None]
  - RESPIRATORY DISORDER [None]
  - TACHYCARDIA [None]
